FAERS Safety Report 14032152 (Version 1)
Quarter: 2017Q4

REPORT INFORMATION
  Report Type: Spontaneous
  Country: MX (occurrence: MX)
  Receive Date: 20171002
  Receipt Date: 20171002
  Transmission Date: 20180321
  Serious: Yes (Other)
  Sender: FDA-Public Use
  Company Number: MX-PFIZER INC-2017419269

PATIENT
  Age: 82 Year
  Sex: Female

DRUGS (2)
  1. EUTIROX [Concomitant]
     Active Substance: LEVOTHYROXINE SODIUM
     Indication: HYPOTHYROIDISM
     Dosage: UNK
  2. DOSTINEX [Suspect]
     Active Substance: CABERGOLINE
     Indication: GALACTORRHOEA
     Dosage: 0.5 MG, UNK
     Dates: start: 201706

REACTIONS (3)
  - Vitamin D deficiency [Not Recovered/Not Resolved]
  - Senile dementia [Not Recovered/Not Resolved]
  - Memory impairment [Not Recovered/Not Resolved]
